FAERS Safety Report 24219917 (Version 3)
Quarter: 2024Q3

REPORT INFORMATION
  Report Type: Spontaneous
  Country: GB (occurrence: GB)
  Receive Date: 20240817
  Receipt Date: 20240923
  Transmission Date: 20241017
  Serious: Yes (Other)
  Sender: XELLIA PHARMACEUTICALS
  Company Number: None

PATIENT

DRUGS (1)
  1. DAPTOMYCIN [Suspect]
     Active Substance: DAPTOMYCIN
     Indication: Product used for unknown indication
     Dosage: 650, MERCK HUMAN HEALTH DIVISION

REACTIONS (1)
  - Blood creatine phosphokinase abnormal [Recovered/Resolved]
